FAERS Safety Report 24236130 (Version 2)
Quarter: 2024Q3

REPORT INFORMATION
  Report Type: Spontaneous
  Country: US (occurrence: US)
  Receive Date: 20240822
  Receipt Date: 20240826
  Transmission Date: 20241016
  Serious: No
  Sender: AMGEN
  Company Number: US-AMGEN-USASP2024165381

PATIENT
  Age: 62 Year
  Sex: Female

DRUGS (4)
  1. REPATHA [Suspect]
     Active Substance: EVOLOCUMAB
     Indication: Product used for unknown indication
     Dosage: 420 MILLIGRAM, QMO
     Route: 065
     Dates: start: 2024, end: 2024
  2. REPATHA [Suspect]
     Active Substance: EVOLOCUMAB
     Dosage: 140 MILLIGRAM, Q2WK
     Route: 065
     Dates: start: 20240531
  3. ATORVASTATIN [Concomitant]
     Active Substance: ATORVASTATIN
     Indication: Blood cholesterol abnormal
     Dosage: UNK
     Dates: start: 2009
  4. ZETIA [Concomitant]
     Active Substance: EZETIMIBE
     Indication: Blood cholesterol abnormal
     Dosage: UNK

REACTIONS (5)
  - Device difficult to use [Unknown]
  - Drug dose omission by device [Unknown]
  - Product communication issue [Unknown]
  - Wrong technique in product usage process [Unknown]
  - Blood cholesterol abnormal [Unknown]

NARRATIVE: CASE EVENT DATE: 20240818
